FAERS Safety Report 4317744-2 (Version None)
Quarter: 2004Q1

REPORT INFORMATION
  Report Type: 
  Country: None (occurrence: None)
  Receive Date: 20040315
  Receipt Date: 20040303
  Transmission Date: 20041129
  Serious: Yes (Other)
  Sender: FDA-Public Use
  Company Number: US-BRISTOL-MYERS SQUIBB COMPANY-12530606

PATIENT
  Age: 83 Year
  Sex: Male

DRUGS (1)
  1. MAXIPIME [Suspect]
     Indication: INFECTION
     Route: 042

REACTIONS (4)
  - EXTRAVASATION [None]
  - INJECTION SITE INFLAMMATION [None]
  - PAIN [None]
  - THROMBOSIS [None]
